FAERS Safety Report 17743266 (Version 1)
Quarter: 2020Q2

REPORT INFORMATION
  Report Type: Spontaneous
  Country: GB (occurrence: GB)
  Receive Date: 20200504
  Receipt Date: 20200504
  Transmission Date: 20200714
  Serious: Yes (Congenital Anomaly, Other)
  Sender: FDA-Public Use
  Company Number: NVSC2020GB117217

PATIENT
  Sex: Female

DRUGS (1)
  1. CARBAMAZEPINE. [Suspect]
     Active Substance: CARBAMAZEPINE
     Indication: FOETAL EXPOSURE DURING PREGNANCY
     Dosage: UNK
     Route: 064

REACTIONS (9)
  - Grey matter heterotopia [Unknown]
  - Developmental delay [Unknown]
  - Foetal anticonvulsant syndrome [Unknown]
  - Speech disorder [Unknown]
  - Hypermobility syndrome [Unknown]
  - High arched palate [Unknown]
  - Foetal exposure during pregnancy [Unknown]
  - Lissencephaly [Unknown]
  - Aggression [Unknown]
